FAERS Safety Report 4734738-3 (Version None)
Quarter: 2005Q3

REPORT INFORMATION
  Report Type: 
  Country: None (occurrence: None)
  Receive Date: 20050804
  Receipt Date: 20050615
  Transmission Date: 20060218
  Serious: Yes (Hospitalization)
  Sender: FDA-Public Use
  Company Number: BR-GLAXOSMITHKLINE-A0568656A

PATIENT
  Age: 4 Year
  Sex: Male

DRUGS (5)
  1. CLAVULIN [Suspect]
     Indication: GASTROENTERITIS
     Dosage: 500MG SINGLE DOSE
     Route: 042
     Dates: start: 20050615, end: 20050615
  2. ZYRTEC [Concomitant]
  3. FLIXONASE [Concomitant]
  4. PREDNISOLONE [Concomitant]
  5. CELESTAMINE TAB [Concomitant]

REACTIONS (3)
  - BURNING SENSATION [None]
  - HYPERAEMIA [None]
  - LOCALISED OEDEMA [None]
